FAERS Safety Report 6555378-X (Version None)
Quarter: 2010Q1

REPORT INFORMATION
  Report Type: 
  Country: None (occurrence: None)
  Receive Date: 20100128
  Receipt Date: 20090814
  Transmission Date: 20100710
  Serious: No
  Sender: FDA-Public Use
  Company Number: A0803102A

PATIENT
  Sex: Female

DRUGS (4)
  1. WELLBUTRIN XL [Suspect]
     Indication: DEPRESSION
     Dosage: 150MG PER DAY
     Route: 048
     Dates: start: 20080201
  2. EFFEXOR XR [Concomitant]
     Dosage: 150MG PER DAY
  3. AMBIEN [Concomitant]
  4. SEROQUEL [Concomitant]
     Dates: start: 20090717

REACTIONS (1)
  - ABNORMAL FAECES [None]
